FAERS Safety Report 20868337 (Version 1)
Quarter: 2022Q2

REPORT INFORMATION
  Report Type: Spontaneous
  Country: GB (occurrence: GB)
  Receive Date: 20220524
  Receipt Date: 20220524
  Transmission Date: 20220721
  Serious: Yes (Death, Other)
  Sender: FDA-Public Use
  Company Number: GB-PFIZER INC-202200746105

PATIENT
  Age: 7 Decade
  Sex: Female

DRUGS (2)
  1. INLYTA [Suspect]
     Active Substance: AXITINIB
     Indication: Clear cell renal cell carcinoma
     Dosage: 5 MG, 1X/DAY
     Dates: start: 20210119
  2. AVELUMAB [Suspect]
     Active Substance: AVELUMAB
     Indication: Clear cell renal cell carcinoma
     Dosage: 800 MG, EVERY 2 WEEKS
     Dates: start: 20210119

REACTIONS (3)
  - Death [Fatal]
  - Neoplasm progression [Unknown]
  - Off label use [Unknown]
